FAERS Safety Report 10076674 (Version 1)
Quarter: 2014Q2

REPORT INFORMATION
  Report Type: Other
  Country: GB (occurrence: GB)
  Receive Date: 20140414
  Receipt Date: 20140414
  Transmission Date: 20141212
  Serious: Yes (Death, Hospitalization, Other)
  Sender: FDA-Public Use
  Company Number: GB-TARO PHARMACEUTICALS U.S.A., INC-2014SUN00794

PATIENT
  Sex: 0

DRUGS (5)
  1. WARFARIN [Suspect]
     Indication: DEEP VEIN THROMBOSIS
     Dosage: 3 MG, OD
     Route: 048
     Dates: start: 20000330
  2. WARFARIN [Interacting]
     Dosage: 4.86 MG, OD
     Route: 048
  3. AZATHIOPRINE [Interacting]
     Indication: RHEUMATOID ARTHRITIS
     Dosage: 150 MG, UNK
     Route: 048
     Dates: start: 20130606
  4. AZATHIOPRINE [Interacting]
     Dosage: 200 MG, UNK, AFTER 8 WEEKS
     Route: 048
  5. AZATHIOPRINE [Interacting]
     Dosage: 300 MG, UNK
     Route: 048

REACTIONS (3)
  - Drug interaction [Unknown]
  - Deep vein thrombosis [Unknown]
  - International normalised ratio decreased [Recovered/Resolved]
